FAERS Safety Report 10187375 (Version 5)
Quarter: 2015Q2

REPORT INFORMATION
  Report Type: Report from Study
  Country: DE (occurrence: DE)
  Receive Date: 20140522
  Receipt Date: 20150520
  Transmission Date: 20150821
  Serious: Yes (Death, Life-Threatening)
  Sender: FDA-Public Use
  Company Number: DE-JNJFOC-20131014024

PATIENT
  Age: 87 Year
  Sex: Female
  Weight: 70 kg

DRUGS (5)
  1. RIVAROXABAN [Suspect]
     Active Substance: RIVAROXABAN
     Indication: EMBOLISM VENOUS
     Route: 048
     Dates: start: 20130830, end: 20130919
  2. RIVAROXABAN [Suspect]
     Active Substance: RIVAROXABAN
     Indication: EMBOLISM VENOUS
     Route: 048
     Dates: start: 20130920, end: 20130926
  3. INNOHEP [Concomitant]
     Active Substance: TINZAPARIN SODIUM
     Indication: PRODUCT USED FOR UNKNOWN INDICATION
     Route: 065
     Dates: start: 20130927, end: 20131115
  4. RIVAROXABAN [Suspect]
     Active Substance: RIVAROXABAN
     Indication: DEEP VEIN THROMBOSIS
     Route: 048
     Dates: start: 20130830, end: 20130919
  5. RIVAROXABAN [Suspect]
     Active Substance: RIVAROXABAN
     Indication: DEEP VEIN THROMBOSIS
     Route: 048
     Dates: start: 20130920, end: 20130926

REACTIONS (4)
  - Pancreatic carcinoma [Fatal]
  - Metastases to liver [Recovered/Resolved]
  - Anal haemorrhage [Recovered/Resolved]
  - Abdominal pain upper [Recovered/Resolved]

NARRATIVE: CASE EVENT DATE: 20130907
